FAERS Safety Report 12939435 (Version 3)
Quarter: 2017Q1

REPORT INFORMATION
  Report Type: Report from Study
  Country: US (occurrence: US)
  Receive Date: 20161115
  Receipt Date: 20170103
  Transmission Date: 20170428
  Serious: Yes (Hospitalization)
  Sender: FDA-Public Use
  Company Number: US-JNJFOC-20160816290

PATIENT
  Age: 78 Year
  Sex: Female
  Weight: 57 kg

DRUGS (9)
  1. CYCLOBENZAPRINE [Concomitant]
     Active Substance: CYCLOBENZAPRINE
  2. ASPIRIN. [Concomitant]
     Active Substance: ASPIRIN
  3. AZISIA [Concomitant]
  4. IMBRUVICA [Suspect]
     Active Substance: IBRUTINIB
     Indication: LYMPHOCYTIC LEUKAEMIA
     Route: 048
     Dates: start: 20160810
  5. TRAMADOL. [Concomitant]
     Active Substance: TRAMADOL
  6. IMBRUVICA [Suspect]
     Active Substance: IBRUTINIB
     Indication: CHRONIC LYMPHOCYTIC LEUKAEMIA
     Route: 048
     Dates: start: 20160810
  7. METOPROLOL. [Concomitant]
     Active Substance: METOPROLOL
  8. IMBRUVICA [Suspect]
     Active Substance: IBRUTINIB
     Indication: LYMPHOCYTIC LEUKAEMIA
     Route: 048
     Dates: start: 20160811
  9. IMBRUVICA [Suspect]
     Active Substance: IBRUTINIB
     Indication: CHRONIC LYMPHOCYTIC LEUKAEMIA
     Route: 048
     Dates: start: 20160811

REACTIONS (20)
  - Scratch [Unknown]
  - Sciatica [Unknown]
  - Dry eye [Unknown]
  - Glossodynia [Recovered/Resolved]
  - Dry mouth [Unknown]
  - Product use issue [Not Recovered/Not Resolved]
  - Gingival bleeding [Unknown]
  - Muscle spasms [Unknown]
  - Back pain [Unknown]
  - White blood cell count increased [Not Recovered/Not Resolved]
  - Myalgia [Unknown]
  - Constipation [Recovering/Resolving]
  - Functional gastrointestinal disorder [Unknown]
  - Off label use [Not Recovered/Not Resolved]
  - Erythema [Unknown]
  - Spinal compression fracture [Unknown]
  - Ear haemorrhage [Unknown]
  - Candida infection [Recovered/Resolved]
  - Eyelid margin crusting [Unknown]
  - Arthralgia [Not Recovered/Not Resolved]

NARRATIVE: CASE EVENT DATE: 2016
